FAERS Safety Report 12467592 (Version 1)
Quarter: 2016Q2

REPORT INFORMATION
  Report Type: Spontaneous
  Country: US (occurrence: US)
  Receive Date: 20160615
  Receipt Date: 20160615
  Transmission Date: 20160815
  Serious: No
  Sender: FDA-Public Use
  Company Number: US-WATSON-2015-14158

PATIENT
  Age: 60 Year
  Sex: Female

DRUGS (1)
  1. CIPROFLOXACIN HYDROCHLORIDE (WATSON LABORATORIES) [Suspect]
     Active Substance: CIPROFLOXACIN HYDROCHLORIDE
     Indication: INFECTION
     Dosage: 500 MG, BID
     Route: 048
     Dates: start: 20150601, end: 20150605

REACTIONS (3)
  - Tendon pain [Not Recovered/Not Resolved]
  - Nodule [Not Recovered/Not Resolved]
  - Tendon injury [Not Recovered/Not Resolved]

NARRATIVE: CASE EVENT DATE: 20150604
